FAERS Safety Report 5485513-6 (Version None)
Quarter: 2007Q4

REPORT INFORMATION
  Report Type: 
  Country: None (occurrence: None)
  Receive Date: 20071010
  Receipt Date: 20071010
  Transmission Date: 20080405
  Serious: Yes (Hospitalization)
  Sender: FDA-Public Use
  Company Number: None

PATIENT
  Age: 95 Year
  Sex: Female

DRUGS (7)
  1. AVELOX [Suspect]
     Indication: UPPER RESPIRATORY TRACT INFECTION
     Dosage: IV
     Route: 042
  2. DIOVAN [Concomitant]
  3. FOSAMAX [Concomitant]
  4. PAROXETINE [Concomitant]
  5. TYLENOL (CAPLET) [Concomitant]
  6. OSCAL+VIT D [Concomitant]
  7. MULTI-VITAMIN [Concomitant]

REACTIONS (2)
  - HYPOTENSION [None]
  - OXYGEN SATURATION DECREASED [None]
